FAERS Safety Report 22049161 (Version 1)
Quarter: 2023Q1

REPORT INFORMATION
  Report Type: Spontaneous
  Country: US (occurrence: None)
  Receive Date: 20230228
  Receipt Date: 20230228
  Transmission Date: 20230418
  Serious: Yes (Life-Threatening, Hospitalization, Disabling, Other)
  Sender: FDA-Public Use
  Company Number: None

PATIENT
  Age: 75 Year
  Sex: Male
  Weight: 81 kg

DRUGS (1)
  1. KEYTRUDA [Suspect]
     Active Substance: PEMBROLIZUMAB
     Indication: Malignant melanoma
     Dates: start: 20211213, end: 20220606

REACTIONS (7)
  - Dehydration [None]
  - Hypotension [None]
  - Therapy cessation [None]
  - Malaise [None]
  - Asthenia [None]
  - Secondary adrenocortical insufficiency [None]
  - Hypothalamo-pituitary disorder [None]

NARRATIVE: CASE EVENT DATE: 20220615
